FAERS Safety Report 19883272 (Version 1)
Quarter: 2021Q3

REPORT INFORMATION
  Report Type: Spontaneous
  Country: US (occurrence: US)
  Receive Date: 20210926
  Receipt Date: 20210926
  Transmission Date: 20211014
  Serious: No
  Sender: FDA-Public Use
  Company Number: US-SA-2021SA311448

PATIENT
  Sex: Male

DRUGS (15)
  1. MOMETASONE [Concomitant]
     Active Substance: MOMETASONE
  2. KEVZARA [Suspect]
     Active Substance: SARILUMAB
     Indication: RHEUMATOID ARTHRITIS
     Dosage: 200 MG, QOW
     Route: 058
  3. AMLODIPINE [Concomitant]
     Active Substance: AMLODIPINE BESYLATE
  4. MISOPROSTOL. [Concomitant]
     Active Substance: MISOPROSTOL
  5. PREDNISONE. [Concomitant]
     Active Substance: PREDNISONE
  6. PEG 3350 [Concomitant]
     Active Substance: POLYETHYLENE GLYCOL 3350
  7. BENAZEPRIL [Concomitant]
     Active Substance: BENAZEPRIL HYDROCHLORIDE
  8. AMITIZA [Concomitant]
     Active Substance: LUBIPROSTONE
  9. METOPROLOL TARTRATE. [Concomitant]
     Active Substance: METOPROLOL TARTRATE
  10. PANTOPRAZOLE [Concomitant]
     Active Substance: PANTOPRAZOLE
  11. DIPHENOXYLATE/ATROPINE [Concomitant]
     Active Substance: ATROPINE\DIPHENOXYLATE
  12. VENTOLIN HFA [Concomitant]
     Active Substance: ALBUTEROL SULFATE
  13. ATORVASTATIN [Concomitant]
     Active Substance: ATORVASTATIN
  14. DIAZEPAM. [Concomitant]
     Active Substance: DIAZEPAM
  15. RANITIDINE. [Concomitant]
     Active Substance: RANITIDINE

REACTIONS (2)
  - Drug ineffective [Unknown]
  - Weight decreased [Unknown]
